FAERS Safety Report 20832233 (Version 1)
Quarter: 2022Q2

REPORT INFORMATION
  Report Type: 
  Country: None (occurrence: None)
  Receive Date: 20220516
  Receipt Date: 20220516
  Transmission Date: 20220720
  Serious: No
  Sender: FDA-Public Use
  Company Number: UY-ROCHE-3083460

PATIENT
  Weight: 73 kg

DRUGS (22)
  1. POLATUZUMAB VEDOTIN [Suspect]
     Active Substance: POLATUZUMAB VEDOTIN
     Dosage: FIRST CYCLE
     Dates: start: 20220323
  2. POLATUZUMAB VEDOTIN [Suspect]
     Active Substance: POLATUZUMAB VEDOTIN
     Dosage: SECOND CYCLE
     Dates: start: 20220413
  3. RITUXIMAB [Suspect]
     Active Substance: RITUXIMAB
     Dosage: FORM OF ADMIN 100 MG, FIRST CYCLE
     Dates: start: 20220323
  4. RITUXIMAB [Suspect]
     Active Substance: RITUXIMAB
     Dosage: SECOND CYCLE, FORM OF ADMIN 100 MG
     Dates: start: 20220413
  5. RITUXIMAB [Suspect]
     Active Substance: RITUXIMAB
     Dosage: FORM OF ADMIN 500 MG, FIRST CYCLE
     Dates: start: 20220323
  6. RITUXIMAB [Suspect]
     Active Substance: RITUXIMAB
     Dosage: FORM OF ADMIN 500 MG, SECOND CYCLE
     Dates: start: 20220413
  7. BENDAMUSTINE [Concomitant]
     Active Substance: BENDAMUSTINE
     Dosage: DOSE AND FREQUENCY WERE NOT REPORTED
     Dates: start: 202203
  8. ALLOPURINOL [Concomitant]
     Active Substance: ALLOPURINOL
  9. OMEPRAZOLE [Concomitant]
     Active Substance: OMEPRAZOLE
  10. ONDANSETRON [Concomitant]
     Active Substance: ONDANSETRON
  11. ONDANSETRON [Concomitant]
     Active Substance: ONDANSETRON
     Dosage: 4 VIALS IV IN 250 CM3 OF PHYSIOLOGICAL SERUM IN 24 HOURS
  12. MORPHINE [Concomitant]
     Active Substance: MORPHINE
     Dosage: RESCUE WITH MORPHINE 1/2 AMPOULE SALINE SOLUTION AS NEEDED
  13. MIDAZOLAM [Concomitant]
     Active Substance: MIDAZOLAM
     Dosage: 1 AMPOULE IV IN 24 HOURS, ADJUSTING AS NEEDED
  14. FENTANYL [Concomitant]
     Active Substance: FENTANYL
  15. PREGABALIN [Concomitant]
     Active Substance: PREGABALIN
  16. DEXAMETHASONE [Concomitant]
     Active Substance: DEXAMETHASONE
  17. ENOXAPARIN SODIUM [Concomitant]
     Active Substance: ENOXAPARIN SODIUM
  18. VALACYCLOVIR [Concomitant]
     Active Substance: VALACYCLOVIR HYDROCHLORIDE
  19. BACTRIM [Concomitant]
     Active Substance: SULFAMETHOXAZOLE\TRIMETHOPRIM
     Dosage: 1 TABLET VIA ORAL, EVERY 12 HOURS, MONDAY, WEDNESDAY AND FRIDAY
  20. FOLIC ACID [Concomitant]
     Active Substance: FOLIC ACID
     Dosage: 10 MG VIA ORAL, TUESDAY, THURSDAY AND SATURDAY
  21. ALPRAZOLAM [Concomitant]
     Active Substance: ALPRAZOLAM
  22. HALOPERIDOL [Concomitant]
     Active Substance: HALOPERIDOL
     Dosage: 1/2 AMPOULE, SC EVERY 8H

REACTIONS (12)
  - Pyrexia [None]
  - Listless [None]
  - Therapeutic response decreased [None]
  - Pancytopenia [None]
  - Blood lactate dehydrogenase increased [None]
  - Abdominal neoplasm [None]
  - Tumour pain [None]
  - Leukopenia [None]
  - Neutropenia [None]
  - Anaemia [None]
  - Thrombocytopenia [None]
  - Disease progression [None]

NARRATIVE: CASE EVENT DATE: 20220418
